FAERS Safety Report 19879953 (Version 3)
Quarter: 2021Q4

REPORT INFORMATION
  Report Type: Other
  Country: PE (occurrence: None)
  Receive Date: 20210924
  Receipt Date: 20211210
  Transmission Date: 20220303
  Serious: Yes (Hospitalization, Other)
  Sender: FDA-Public Use
  Company Number: PE-ROCHE-2911785

PATIENT
  Sex: Female

DRUGS (5)
  1. PRALSETINIB [Suspect]
     Active Substance: PRALSETINIB
     Indication: Medullary thyroid cancer
     Route: 048
     Dates: start: 20210826
  2. PRALSETINIB [Suspect]
     Active Substance: PRALSETINIB
     Route: 048
     Dates: start: 20211130
  3. GABAPENTIN [Concomitant]
     Active Substance: GABAPENTIN
  4. GABAPENTIN [Concomitant]
     Active Substance: GABAPENTIN
  5. VITAMIN B COMPLEX [Concomitant]
     Active Substance: CYANOCOBALAMIN\DEXPANTHENOL\NIACINAMIDE\PYRIDOXINE HYDROCHLORIDE\RIBOFLAVIN 5^-PHOSPHATE SODIUM\THIA

REACTIONS (27)
  - Tumour lysis syndrome [Recovering/Resolving]
  - Arthralgia [Unknown]
  - Cellulitis [Unknown]
  - Monoparesis [Unknown]
  - Somnolence [Recovering/Resolving]
  - Flushing [Unknown]
  - Dry mouth [Recovered/Resolved]
  - Stomatitis [Unknown]
  - Constipation [Recovered/Resolved]
  - Palmar-plantar erythrodysaesthesia syndrome [Recovered/Resolved]
  - Feeling hot [Recovered/Resolved]
  - Back pain [Recovered/Resolved]
  - Mucosal inflammation [Recovered/Resolved]
  - Chills [Unknown]
  - Dizziness [Unknown]
  - Psychomotor hyperactivity [Recovering/Resolving]
  - Blood calcitonin decreased [Unknown]
  - Vaginal ulceration [Recovered/Resolved]
  - Decreased appetite [Recovering/Resolving]
  - Transaminases increased [Unknown]
  - Fatigue [Unknown]
  - Oedema peripheral [Unknown]
  - Hepatotoxicity [Recovering/Resolving]
  - Asthenia [Unknown]
  - Somnolence [Unknown]
  - Headache [Unknown]
  - Hyperhidrosis [Unknown]

NARRATIVE: CASE EVENT DATE: 20210827
